FAERS Safety Report 6929704-3 (Version None)
Quarter: 2010Q3

REPORT INFORMATION
  Report Type: 
  Country: None (occurrence: None)
  Receive Date: 20100813
  Receipt Date: 20100802
  Transmission Date: 20110219
  Serious: Yes (Hospitalization)
  Sender: FDA-Public Use
  Company Number: LEO-2010-00705

PATIENT
  Age: 42 Year
  Sex: Female

DRUGS (1)
  1. TACLONEX [Suspect]
     Indication: PSORIASIS
     Dosage: 1, TOPICAL
     Route: 061
     Dates: start: 20100620

REACTIONS (1)
  - DYSPNOEA [None]
